FAERS Safety Report 17584018 (Version 2)
Quarter: 2020Q2

REPORT INFORMATION
  Report Type: Report from Study
  Country: CL (occurrence: CL)
  Receive Date: 20200326
  Receipt Date: 20200403
  Transmission Date: 20200713
  Serious: Yes (Hospitalization, Other)
  Sender: FDA-Public Use
  Company Number: CL-US-PROVELL PHARMACEUTICALS LLC-9152954

PATIENT
  Age: 43 Year
  Sex: Female

DRUGS (2)
  1. EUTHYROX [Suspect]
     Active Substance: LEVOTHYROXINE SODIUM
     Dosage: EUTHYROX 250 (UNSPECIFIED UNIT)
  2. EUTHYROX [Suspect]
     Active Substance: LEVOTHYROXINE SODIUM
     Indication: HYPOTHYROIDISM

REACTIONS (6)
  - Gastrointestinal disorder [Unknown]
  - Asthenia [Unknown]
  - General physical health deterioration [Unknown]
  - Thyrotoxic crisis [Unknown]
  - Maternal exposure during pregnancy [Recovered/Resolved]
  - Live birth [Recovered/Resolved]
